FAERS Safety Report 4638158-1 (Version None)
Quarter: 2005Q2

REPORT INFORMATION
  Report Type: 
  Country: None (occurrence: None)
  Receive Date: 20050415
  Receipt Date: 20050329
  Transmission Date: 20051028
  Serious: No
  Sender: FDA-Public Use
  Company Number: USA040669909

PATIENT
  Age: 57 Year
  Sex: Female

DRUGS (9)
  1. FORTEO [Suspect]
     Indication: OSTEOPOROSIS
     Dates: start: 20040603
  2. CORTISONE ACETATE [Concomitant]
  3. SYNTHROID [Concomitant]
  4. DDAVP [Concomitant]
  5. CORTEF (HYDROCORTISONE CIPIONATE) [Concomitant]
  6. ZYRTEC [Concomitant]
  7. ALLERGY SHOT [Concomitant]
  8. CITRACAL (CALCIUM CITRATE) [Concomitant]
  9. VITAMINS [Concomitant]

REACTIONS (10)
  - ARTHRALGIA [None]
  - ASTHENIA [None]
  - GAIT DISTURBANCE [None]
  - MIDDLE INSOMNIA [None]
  - MYALGIA [None]
  - NECK INJURY [None]
  - PAIN [None]
  - PAIN IN EXTREMITY [None]
  - PARAESTHESIA [None]
  - PHARMACEUTICAL PRODUCT COMPLAINT [None]
